FAERS Safety Report 8309468-1 (Version None)
Quarter: 2012Q2

REPORT INFORMATION
  Report Type: 
  Country: None (occurrence: None)
  Receive Date: 20120425
  Receipt Date: 20120418
  Transmission Date: 20120825
  Serious: Yes (Other)
  Sender: FDA-Public Use
  Company Number: US-CELGENEUS-163-21880-12023109

PATIENT
  Sex: Female

DRUGS (3)
  1. REVLIMID [Suspect]
     Indication: MULTIPLE MYELOMA
     Dosage: 25 MILLIGRAM
     Route: 048
     Dates: start: 20111109, end: 20111201
  2. DEXAMETHASONE [Concomitant]
     Route: 065
     Dates: start: 20111118
  3. VELCADE [Concomitant]
     Route: 065
     Dates: start: 20111118

REACTIONS (2)
  - HUMAN CHORIONIC GONADOTROPIN INCREASED [None]
  - UTERINE HAEMORRHAGE [None]
